FAERS Safety Report 8983769 (Version 2)
Quarter: 2013Q1

REPORT INFORMATION
  Report Type: Report from Study
  Country: DE (occurrence: DE)
  Receive Date: 20121224
  Receipt Date: 20130103
  Transmission Date: 20140127
  Serious: Yes (Hospitalization, Other)
  Sender: FDA-Public Use
  Company Number: DE-ROCHE-1167523

PATIENT
  Age: 76 Year
  Sex: Male
  Weight: 90 kg

DRUGS (1)
  1. TOCILIZUMAB [Suspect]
     Indication: RHEUMATOID ARTHRITIS
     Dosage: DRUG DISCONTINUED ON AN UNSPECIFIED DATE
     Route: 042
     Dates: start: 20110322

REACTIONS (2)
  - Renal cell carcinoma [Recovering/Resolving]
  - Renal cyst [Recovered/Resolved with Sequelae]
